FAERS Safety Report 5610557-0 (Version None)
Quarter: 2008Q1

REPORT INFORMATION
  Report Type: 
  Country: None (occurrence: None)
  Receive Date: 20080201
  Receipt Date: 20080124
  Transmission Date: 20080703
  Serious: Yes (Other)
  Sender: FDA-Public Use
  Company Number: US-JNJFOC-20080106809

PATIENT
  Sex: Male
  Weight: 115.67 kg

DRUGS (3)
  1. DURAGESIC-100 [Suspect]
     Dosage: 100 AND 75 UG/HR PATCHES
     Route: 062
  2. DURAGESIC-100 [Suspect]
     Indication: RADICULAR PAIN
     Route: 062
  3. KEPPRA [Concomitant]
     Indication: BREAKTHROUGH PAIN
     Route: 048

REACTIONS (5)
  - BIPOLAR DISORDER [None]
  - DEPRESSION [None]
  - HYPOTHYROIDISM [None]
  - INCORRECT DRUG ADMINISTRATION DURATION [None]
  - WRONG TECHNIQUE IN DRUG USAGE PROCESS [None]
